FAERS Safety Report 17257928 (Version 1)
Quarter: 2020Q1

REPORT INFORMATION
  Report Type: Spontaneous
  Country: ES (occurrence: ES)
  Receive Date: 20200110
  Receipt Date: 20200110
  Transmission Date: 20200409
  Serious: Yes (Other)
  Sender: FDA-Public Use
  Company Number: ES-MYLANLABS-2020M1002601

PATIENT
  Sex: Male

DRUGS (4)
  1. FLECAINIDE [Interacting]
     Active Substance: FLECAINIDE
     Indication: ATRIAL FIBRILLATION
     Dosage: 50 MILLIGRAM, BID
     Route: 048
     Dates: start: 20190601, end: 20191007
  2. FLECAINIDE [Interacting]
     Active Substance: FLECAINIDE
     Dosage: 100MG CADA 12 HORAS
     Route: 048
     Dates: start: 20191008, end: 20191011
  3. BISOPROLOL [Suspect]
     Active Substance: BISOPROLOL
     Indication: ATRIAL FIBRILLATION
     Dosage: 1.25 MILLIGRAM, QD
     Route: 048
     Dates: start: 20190601, end: 20191007
  4. BISOPROLOL [Interacting]
     Active Substance: BISOPROLOL
     Dosage: 2.5MG CADA 24H
     Route: 048
     Dates: start: 20191008, end: 20191011

REACTIONS (3)
  - Drug interaction [Unknown]
  - Presyncope [Recovered/Resolved]
  - Bradycardia [Recovered/Resolved]

NARRATIVE: CASE EVENT DATE: 20191011
